FAERS Safety Report 16804608 (Version 1)
Quarter: 2019Q3

REPORT INFORMATION
  Report Type: Spontaneous
  Country: EG (occurrence: EG)
  Receive Date: 20190913
  Receipt Date: 20190913
  Transmission Date: 20191005
  Serious: Yes (Hospitalization)
  Sender: FDA-Public Use
  Company Number: EG-HIKMA PHARMACEUTICALS USA INC.-EG-H14001-19-04881

PATIENT
  Age: 65 Year
  Sex: Female
  Weight: 62 kg

DRUGS (4)
  1. BLEOCIP [Suspect]
     Active Substance: BLEOMYCIN SULFATE
     Indication: LYMPHOMA
     Dosage: FORM STRENGTH: 15 IU/ML
     Route: 042
  2. CYTOBLASTIN [Concomitant]
     Indication: LYMPHOMA
     Dosage: FORM STRENGTH: 10 MG / 10 ML
     Route: 042
  3. DACARBAZINE. [Concomitant]
     Active Substance: DACARBAZINE
     Indication: LYMPHOMA
     Route: 042
  4. ADRICIN (DOXORUBICIN) [Suspect]
     Active Substance: DOXORUBICIN
     Indication: LYMPHOMA
     Route: 042

REACTIONS (6)
  - Asthenia [Recovered/Resolved]
  - Toxicity to various agents [Recovered/Resolved]
  - Malaise [Recovered/Resolved]
  - Stomatitis [Recovered/Resolved]
  - Dizziness [Recovered/Resolved]
  - Vomiting [Recovered/Resolved]

NARRATIVE: CASE EVENT DATE: 20181225
